FAERS Safety Report 7985591 (Version 6)
Quarter: 2013Q3

REPORT INFORMATION
  Report Type: Report from Study
  Country: TH (occurrence: TH)
  Receive Date: 20110610
  Receipt Date: 20130715
  Transmission Date: 20140515
  Serious: Yes (Hospitalization)
  Sender: FDA-Public Use
  Company Number: TH-BRISTOL-MYERS SQUIBB COMPANY-15811771

PATIENT
  Age: 50 Year
  Sex: Male

DRUGS (3)
  1. SAXAGLIPTIN [Suspect]
     Indication: TYPE 2 DIABETES MELLITUS
     Dates: start: 20110519, end: 20110605
  2. METFORMIN HCL [Suspect]
     Indication: DIABETES MELLITUS
  3. PIOGLITAZONE HCL [Suspect]
     Indication: DIABETES MELLITUS

REACTIONS (1)
  - Pancreatitis acute [Recovered/Resolved]
